FAERS Safety Report 6258943-2 (Version None)
Quarter: 2009Q3

REPORT INFORMATION
  Report Type: 
  Country: None (occurrence: None)
  Receive Date: 20090707
  Receipt Date: 20090529
  Transmission Date: 20100115
  Serious: Yes (Other)
  Sender: FDA-Public Use
  Company Number: AU-JNJFOC-20090701053

PATIENT
  Age: 30 Year
  Sex: Female

DRUGS (3)
  1. ITRACONAZOLE [Suspect]
     Indication: BRONCHOPULMONARY ASPERGILLOSIS ALLERGIC
     Route: 048
  2. ITRACONAZOLE [Suspect]
     Route: 048
  3. ITRACONAZOLE [Suspect]
     Route: 048

REACTIONS (1)
  - DRUG LEVEL INCREASED [None]
